FAERS Safety Report 5241428-X (Version None)
Quarter: 2007Q1

REPORT INFORMATION
  Report Type: 
  Country: None (occurrence: None)
  Receive Date: 20070212
  Receipt Date: 20070212
  Transmission Date: 20070707
  Serious: Yes (Death)
  Sender: FDA-Public Use
  Company Number: None

PATIENT
  Sex: Female
  Weight: 56.6996 kg

DRUGS (3)
  1. ZOLOFT [Suspect]
     Indication: ANXIETY
     Dosage: 25 MG AND 50 MG ONCE A DAY PO
     Route: 048
     Dates: start: 20070108, end: 20070126
  2. ZOLOFT [Suspect]
     Indication: DEPRESSION
     Dosage: 25 MG AND 50 MG ONCE A DAY PO
     Route: 048
     Dates: start: 20070108, end: 20070126
  3. XANAX AND TRAZODONE  0.25 MG AND 100 MG [Suspect]
     Indication: INSOMNIA
     Dosage: 0.25 AND 100 MG BID AND BEDTIME PO
     Route: 048
     Dates: start: 20070108, end: 20070126

REACTIONS (3)
  - COMPLETED SUICIDE [None]
  - CONDITION AGGRAVATED [None]
  - DEPRESSION [None]
